FAERS Safety Report 20818032 (Version 1)
Quarter: 2022Q2

REPORT INFORMATION
  Report Type: Spontaneous
  Country: US (occurrence: None)
  Receive Date: 20220511
  Receipt Date: 20220511
  Transmission Date: 20220720
  Serious: Yes (Other)
  Sender: FDA-Public Use
  Company Number: None

PATIENT

DRUGS (2)
  1. CAPECITABINE [Suspect]
     Active Substance: CAPECITABINE
     Indication: Breast cancer metastatic
     Dosage: OTHER QUANTITY : 1000 MGAM,500MG;QPM?FREQUENCY : TWICE A DAY;?
     Route: 048
     Dates: start: 202006
  2. CAPECITABINE [Suspect]
     Active Substance: CAPECITABINE
     Indication: Metastases to central nervous system

REACTIONS (8)
  - Hypoaesthesia [None]
  - Nausea [None]
  - Weight decreased [None]
  - Memory impairment [None]
  - Therapy interrupted [None]
  - Erythema [None]
  - Vomiting [None]
  - Motion sickness [None]

NARRATIVE: CASE EVENT DATE: 20220103
